FAERS Safety Report 9068529 (Version 2)
Quarter: 2013Q3

REPORT INFORMATION
  Report Type: Report from Study
  Country: JP (occurrence: JP)
  Receive Date: 20130128
  Receipt Date: 20130806
  Transmission Date: 20140515
  Serious: Yes (Other)
  Sender: FDA-Public Use
  Company Number: JP-VERTEX PHARMACEUTICALS INC.-2013-001214

PATIENT
  Age: 45 Year
  Sex: Male

DRUGS (12)
  1. VX-950 (TELAPREVIR) [Suspect]
     Indication: HEPATITIS C
     Dosage: 1500 MG, QD
     Route: 048
     Dates: start: 20120508, end: 20120711
  2. VX-950 (TELAPREVIR) [Suspect]
     Dosage: 750 MG, QD
     Dates: start: 20120712, end: 20120725
  3. RIBAVIRIN [Suspect]
     Indication: HEPATITIS C
     Dosage: 800 MG, QD
     Route: 048
     Dates: start: 20120508, end: 20120530
  4. RIBAVIRIN [Suspect]
     Dosage: 400 MG, QD
     Route: 048
     Dates: start: 20120531, end: 20120613
  5. RIBAVIRIN [Suspect]
     Dosage: 200 MG, QD
     Route: 048
     Dates: start: 20120614, end: 20120627
  6. RIBAVIRIN [Suspect]
     Dosage: 200 MG, QD
     Route: 048
     Dates: start: 20120808, end: 20121023
  7. PEGINTERFERON ALFA-2B [Suspect]
     Indication: HEPATITIS C
     Dosage: 1.4 ?G/KG/WEEK
     Route: 058
     Dates: start: 20120508, end: 20120508
  8. PEGINTERFERON ALFA-2B [Suspect]
     Dosage: 1.1 ?G/KG/WEEK
     Route: 058
     Dates: start: 20120515, end: 20120606
  9. PEGINTERFERON ALFA-2B [Suspect]
     Dosage: 1 ?G/KG/WEEK
     Route: 058
     Dates: start: 20120515, end: 20120613
  10. PEGINTERFERON ALFA-2B [Suspect]
     Dosage: 0.7 ?G/KG/WEEK
     Route: 058
     Dates: start: 20120613, end: 20120725
  11. PEGINTERFERON ALFA-2B [Suspect]
     Dosage: 0.7 ?G/KG/WEEK
     Route: 058
     Dates: start: 20120808, end: 20121017
  12. MUCOSTA [Concomitant]
     Dosage: 100 MG, PRN
     Route: 048
     Dates: start: 20120815

REACTIONS (1)
  - Neutrophil count decreased [Recovered/Resolved]
